FAERS Safety Report 7101676-0 (Version None)
Quarter: 2010Q4

REPORT INFORMATION
  Report Type: 
  Country: None (occurrence: None)
  Receive Date: 20101115
  Receipt Date: 20101109
  Transmission Date: 20110411
  Serious: Yes (Other)
  Sender: FDA-Public Use
  Company Number: US-BAYER-201035669NA

PATIENT
  Age: 26 Year
  Sex: Female
  Weight: 93 kg

DRUGS (1)
  1. MIRENA [Suspect]
     Indication: CONTRACEPTION
     Route: 015
     Dates: start: 20100226, end: 20100930

REACTIONS (7)
  - DIZZINESS [None]
  - FATIGUE [None]
  - FLUSHING [None]
  - HYPERHIDROSIS [None]
  - UTERINE PERFORATION [None]
  - VAGINAL HAEMORRHAGE [None]
  - WEIGHT INCREASED [None]
